FAERS Safety Report 9005266 (Version 2)
Quarter: 2013Q1

REPORT INFORMATION
  Report Type: Spontaneous
  Country: FR (occurrence: FR)
  Receive Date: 20130108
  Receipt Date: 20130204
  Transmission Date: 20140127
  Serious: Yes (Other)
  Sender: FDA-Public Use
  Company Number: FR-009507513-1301FRA001615

PATIENT
  Age: 33 Year
  Sex: Female
  Weight: 55 kg

DRUGS (2)
  1. ORGALUTRAN [Suspect]
     Indication: INFERTILITY
     Dosage: 0.25 MG, UNK
     Route: 058
     Dates: start: 20121129, end: 20121130
  2. PUREGON [Concomitant]
     Indication: INFERTILITY
     Dosage: UNK
     Route: 058
     Dates: start: 20121122, end: 20121129

REACTIONS (4)
  - Loss of consciousness [Recovered/Resolved]
  - Injection site swelling [Recovered/Resolved]
  - Hypersensitivity [Recovered/Resolved]
  - Malaise [Recovered/Resolved]
